FAERS Safety Report 11354307 (Version 1)
Quarter: 2015Q3

REPORT INFORMATION
  Report Type: Spontaneous
  Country: US (occurrence: US)
  Receive Date: 20150807
  Receipt Date: 20150807
  Transmission Date: 20151125
  Serious: No
  Sender: FDA-Public Use
  Company Number: US-JNJFOC-20150304729

PATIENT
  Age: 80 Year
  Sex: Female
  Weight: 72.58 kg

DRUGS (4)
  1. TETRAHYDROCANNABINOL [Concomitant]
     Active Substance: DRONABINOL
     Indication: HYPERTENSION
     Route: 065
  2. WOMENS ROGAINE [Suspect]
     Active Substance: MINOXIDIL
     Route: 061
  3. WOMENS ROGAINE [Suspect]
     Active Substance: MINOXIDIL
     Indication: HAIR GROWTH ABNORMAL
     Dosage: DROPPER LINE
     Route: 061
  4. DIOVAN [Concomitant]
     Active Substance: VALSARTAN
     Indication: HYPERTENSION
     Dosage: 40/DAILY
     Route: 065

REACTIONS (2)
  - Skin disorder [Recovered/Resolved]
  - Inappropriate schedule of drug administration [Unknown]
